FAERS Safety Report 7278240-6 (Version None)
Quarter: 2011Q1

REPORT INFORMATION
  Report Type: 
  Country: None (occurrence: None)
  Receive Date: 20110114
  Receipt Date: 20110114
  Transmission Date: 20110831
  Serious: No
  Sender: FDA-Public Use
  Company Number: None

PATIENT
  Age: 44 Year
  Sex: Female
  Weight: 62.5964 kg

DRUGS (2)
  1. COPOXONE [Concomitant]
  2. TRIAD ALCHOL PREP PAD SINGLE PACKETS TRIAD GROUP [Suspect]
     Dosage: SINGLE PACKET DAILY
     Dates: start: 20090715, end: 20110113

REACTIONS (3)
  - APPLICATION SITE PRURITUS [None]
  - APPLICATION SITE ERYTHEMA [None]
  - PRODUCT QUALITY ISSUE [None]
